FAERS Safety Report 6088039-4 (Version None)
Quarter: 2009Q1

REPORT INFORMATION
  Report Type: 
  Country: None (occurrence: None)
  Receive Date: 20090218
  Receipt Date: 20090204
  Transmission Date: 20090719
  Serious: Yes (Death, Life-Threatening)
  Sender: FDA-Public Use
  Company Number: 2009BM000003

PATIENT
  Age: 8 Year
  Sex: Female
  Weight: 22.6799 kg

DRUGS (3)
  1. NAGLAZYME [Suspect]
     Indication: MUCOPOLYSACCHARIDOSIS VI
     Dosage: 25 MG; QW; IVDRP
     Route: 041
     Dates: start: 20070101
  2. CEPHADROXIL [Concomitant]
  3. LORATADINE [Concomitant]

REACTIONS (1)
  - ACUTE LYMPHOCYTIC LEUKAEMIA [None]
